FAERS Safety Report 5733794-3 (Version None)
Quarter: 2008Q2

REPORT INFORMATION
  Report Type: 
  Country: None (occurrence: None)
  Receive Date: 20080509
  Receipt Date: 20080428
  Transmission Date: 20081010
  Serious: Yes (Life-Threatening)
  Sender: FDA-Public Use
  Company Number: IT-PFIZER INC-2008037501

PATIENT
  Sex: Female

DRUGS (8)
  1. LYRICA [Suspect]
     Indication: POST HERPETIC NEURALGIA
     Route: 048
     Dates: start: 20070301, end: 20080324
  2. KEPPRA [Concomitant]
  3. HUMALOG [Concomitant]
  4. LANSOX [Concomitant]
  5. FRAXIPARINA [Concomitant]
  6. COSOPT [Concomitant]
  7. XALACOM [Concomitant]
  8. TPN [Concomitant]

REACTIONS (2)
  - COMA [None]
  - RESPIRATORY FAILURE [None]
